FAERS Safety Report 8491170-7 (Version None)
Quarter: 2012Q2

REPORT INFORMATION
  Report Type: 
  Country: None (occurrence: None)
  Receive Date: 20120627
  Receipt Date: 20120607
  Transmission Date: 20120825
  Serious: Yes (Life-Threatening, Other)
  Sender: FDA-Public Use
  Company Number: 20120382

PATIENT
  Age: 47 Year
  Sex: Female

DRUGS (3)
  1. FENTANYL [Suspect]
     Indication: ANAESTHESIA
     Dosage: 100 UG INTRAVENOUS
     Route: 042
  2. ETOMIDATE [Suspect]
     Indication: ANAESTHESIA
     Dosage: 14 MG INTRAVENOUS
     Route: 042
  3. SUCCINYLCHOLINE CHLORIDE [Suspect]
     Indication: ANAESTHESIA
     Dosage: 100 MG INTRAVENOUS
     Route: 042

REACTIONS (2)
  - BRADYCARDIA [None]
  - CARDIAC ARREST [None]
